FAERS Safety Report 14666621 (Version 1)
Quarter: 2018Q1

REPORT INFORMATION
  Report Type: Report from Study
  Country: US (occurrence: US)
  Receive Date: 20180322
  Receipt Date: 20180322
  Transmission Date: 20180509
  Serious: Yes (Hospitalization, Other)
  Sender: FDA-Public Use
  Company Number: US-ROCHE-1559557

PATIENT
  Age: 69 Year
  Sex: Female
  Weight: 85.7 kg

DRUGS (39)
  1. CYMBALTA [Concomitant]
     Active Substance: DULOXETINE HYDROCHLORIDE
     Route: 048
     Dates: start: 20140923
  2. ZOVIRAX [Concomitant]
     Active Substance: ACYCLOVIR
     Route: 048
     Dates: start: 20150311
  3. DIFLUCAN [Concomitant]
     Active Substance: FLUCONAZOLE
     Route: 048
     Dates: start: 20150311
  4. ZITHROMAX [Concomitant]
     Active Substance: AZITHROMYCIN DIHYDRATE
     Dosage: 2 TABLET ON DAY 1 AND THEN 1 TABLET DAILY ON DAY 2-3
     Route: 048
     Dates: start: 20160428
  5. TYLENOL [Concomitant]
     Active Substance: ACETAMINOPHEN
     Route: 048
  6. NARCAN [Concomitant]
     Active Substance: NALOXONE HYDROCHLORIDE
     Route: 042
     Dates: start: 20150331
  7. NORCO [Concomitant]
     Active Substance: ACETAMINOPHEN\HYDROCODONE BITARTRATE
     Dosage: 5-325 MG
     Route: 048
     Dates: start: 20160426
  8. PRAVACHOL [Concomitant]
     Active Substance: PRAVASTATIN SODIUM
     Route: 048
     Dates: start: 20150610
  9. HUMULIN NOS [Concomitant]
     Active Substance: INSULIN HUMAN
     Route: 058
     Dates: start: 20150601, end: 20150601
  10. GLUCOTROL [Concomitant]
     Active Substance: GLIPIZIDE
     Route: 065
     Dates: start: 20160212
  11. PRAVACHOL [Concomitant]
     Active Substance: PRAVASTATIN SODIUM
     Route: 048
     Dates: start: 20140613
  12. ROBITUSSIN AC (UNITED STATES) [Concomitant]
     Dosage: 100-10 MG/5ML
     Route: 048
     Dates: start: 20160426
  13. HUMULIN NOS [Concomitant]
     Active Substance: INSULIN HUMAN
     Route: 058
     Dates: start: 20150507, end: 20150507
  14. HUMULIN NOS [Concomitant]
     Active Substance: INSULIN HUMAN
     Route: 058
     Dates: start: 20150508, end: 20150508
  15. NEXIUM [Concomitant]
     Active Substance: ESOMEPRAZOLE MAGNESIUM
     Indication: NAUSEA
     Route: 065
     Dates: start: 201507
  16. ZYLOPRIM [Concomitant]
     Active Substance: ALLOPURINOL
     Route: 048
     Dates: start: 20150311
  17. NEURONTIN [Concomitant]
     Active Substance: GABAPENTIN
     Route: 048
     Dates: start: 20151216
  18. HUMULIN NOS [Concomitant]
     Active Substance: INSULIN HUMAN
     Route: 058
     Dates: start: 20150401, end: 20150401
  19. HUMULIN NOS [Concomitant]
     Active Substance: INSULIN HUMAN
     Route: 058
     Dates: start: 20150701, end: 20150701
  20. METHYLPREDNISOLONE. [Suspect]
     Active Substance: METHYLPREDNISOLONE
     Indication: PRODUCT USED FOR UNKNOWN INDICATION
     Route: 065
  21. CYMBALTA [Concomitant]
     Active Substance: DULOXETINE HYDROCHLORIDE
     Route: 065
     Dates: start: 20160303
  22. NEURONTIN [Concomitant]
     Active Substance: GABAPENTIN
     Dosage: 3 CAPSULES A DAY
     Route: 048
     Dates: start: 20140723
  23. HUMULIN NOS [Concomitant]
     Active Substance: INSULIN HUMAN
     Route: 058
     Dates: start: 20150630, end: 20150630
  24. LANTUS SOLOSTAR [Concomitant]
     Active Substance: INSULIN GLARGINE
     Dosage: 100 UNIT/ML
     Route: 065
     Dates: start: 20160426
  25. LANTUS SOLOSTAR [Concomitant]
     Active Substance: INSULIN GLARGINE
     Route: 065
     Dates: start: 20141202
  26. ZYLOPRIM [Concomitant]
     Active Substance: ALLOPURINOL
     Route: 048
     Dates: start: 20160113
  27. NOVOLOG [Concomitant]
     Active Substance: INSULIN ASPART
     Route: 065
     Dates: start: 20150401
  28. HUMULIN NOS [Concomitant]
     Active Substance: INSULIN HUMAN
     Route: 058
     Dates: start: 20150331, end: 20150331
  29. CARAFATE [Concomitant]
     Active Substance: SUCRALFATE
     Indication: GASTROOESOPHAGEAL REFLUX DISEASE
     Route: 048
     Dates: start: 20150730
  30. ZOFRAN [Concomitant]
     Active Substance: ONDANSETRON HYDROCHLORIDE
     Indication: NAUSEA
     Route: 042
     Dates: start: 20150330, end: 20150330
  31. LANTUS [Concomitant]
     Active Substance: INSULIN GLARGINE
  32. HUMALOG [Concomitant]
     Active Substance: INSULIN LISPRO
     Dosage: 100 UNIT/ML
     Route: 065
     Dates: start: 20160126
  33. PRAVASTATIN. [Concomitant]
     Active Substance: PRAVASTATIN
  34. OBINUTUZUMAB. [Suspect]
     Active Substance: OBINUTUZUMAB
     Indication: CHRONIC LYMPHOCYTIC LEUKAEMIA REFRACTORY
     Route: 042
  35. METFORMIN [Suspect]
     Active Substance: METFORMIN HYDROCHLORIDE
     Indication: PRODUCT USED FOR UNKNOWN INDICATION
     Route: 048
     Dates: start: 20140723, end: 20150401
  36. LOTENSIN (UNITED STATES) [Concomitant]
     Dosage: 10-12.5MG
     Route: 048
     Dates: start: 20140821
  37. BACTRIM [Concomitant]
     Active Substance: SULFAMETHOXAZOLE\TRIMETHOPRIM
     Route: 048
     Dates: start: 20150311
  38. ONDASETRON [Concomitant]
     Active Substance: ONDANSETRON
     Route: 042
     Dates: start: 20150331
  39. SEPTRA DS [Concomitant]
     Active Substance: SULFAMETHOXAZOLE\TRIMETHOPRIM
     Indication: PNEUMONIA
     Route: 048
     Dates: start: 20150330

REACTIONS (5)
  - Hyperglycaemia [Recovered/Resolved]
  - Neutropenia [Recovered/Resolved]
  - Lactic acidosis [Recovered/Resolved]
  - Abdominal pain [Unknown]
  - Hyperglycaemia [Recovered/Resolved]

NARRATIVE: CASE EVENT DATE: 20150331
